FAERS Safety Report 24989589 (Version 1)
Quarter: 2025Q1

REPORT INFORMATION
  Report Type: Spontaneous
  Country: CN (occurrence: CN)
  Receive Date: 20250220
  Receipt Date: 20250220
  Transmission Date: 20250408
  Serious: Yes (Hospitalization, Other)
  Sender: STRIDES
  Company Number: CN-STRIDES ARCOLAB LIMITED-2025SP002304

PATIENT
  Age: 17 Year
  Sex: Male

DRUGS (21)
  1. ETOPOSIDE [Suspect]
     Active Substance: ETOPOSIDE
     Indication: T-cell type acute leukaemia
     Route: 065
  2. METHOTREXATE [Suspect]
     Active Substance: METHOTREXATE
     Indication: T-cell type acute leukaemia
     Route: 065
  3. METHOTREXATE [Suspect]
     Active Substance: METHOTREXATE
     Route: 065
  4. CYCLOPHOSPHAMIDE [Suspect]
     Active Substance: CYCLOPHOSPHAMIDE
     Indication: T-cell type acute leukaemia
     Route: 065
  5. CYCLOPHOSPHAMIDE [Suspect]
     Active Substance: CYCLOPHOSPHAMIDE
     Route: 065
  6. CYCLOPHOSPHAMIDE [Suspect]
     Active Substance: CYCLOPHOSPHAMIDE
     Route: 065
     Dates: start: 20190111
  7. BUSULFAN [Suspect]
     Active Substance: BUSULFAN
     Indication: T-cell type acute leukaemia
     Route: 065
     Dates: start: 20190111
  8. VINCRISTINE [Concomitant]
     Active Substance: VINCRISTINE
     Indication: T-cell type acute leukaemia
     Route: 065
  9. PREDNISONE [Concomitant]
     Active Substance: PREDNISONE
     Indication: T-cell type acute leukaemia
     Route: 065
  10. PREDNISONE [Concomitant]
     Active Substance: PREDNISONE
     Route: 065
  11. PREDNISONE [Concomitant]
     Active Substance: PREDNISONE
     Route: 065
  12. PREDNISONE [Concomitant]
     Active Substance: PREDNISONE
     Route: 065
  13. VINDESINE [Concomitant]
     Active Substance: VINDESINE
     Indication: T-cell type acute leukaemia
     Route: 065
  14. VINDESINE [Concomitant]
     Active Substance: VINDESINE
     Route: 065
  15. VINDESINE [Concomitant]
     Active Substance: VINDESINE
     Route: 065
  16. VINDESINE [Concomitant]
     Active Substance: VINDESINE
     Route: 065
  17. DAUNORUBICIN [Concomitant]
     Active Substance: DAUNORUBICIN
     Indication: T-cell type acute leukaemia
     Route: 065
  18. DAUNORUBICIN [Concomitant]
     Active Substance: DAUNORUBICIN
     Route: 065
  19. DOXORUBICIN [Concomitant]
     Active Substance: DOXORUBICIN
     Indication: T-cell type acute leukaemia
     Route: 065
  20. DEXAMETHASONE [Concomitant]
     Active Substance: DEXAMETHASONE
     Indication: T-cell type acute leukaemia
     Route: 065
  21. CYTARABINE [Concomitant]
     Active Substance: CYTARABINE
     Indication: T-cell type acute leukaemia
     Route: 065

REACTIONS (6)
  - Candida infection [Recovering/Resolving]
  - Cytomegalovirus infection [Recovering/Resolving]
  - Hepatic function abnormal [Recovering/Resolving]
  - Mucosal inflammation [Recovering/Resolving]
  - Drug ineffective [Unknown]
  - Off label use [Unknown]
